FAERS Safety Report 10195975 (Version 2)
Quarter: 2014Q2

REPORT INFORMATION
  Report Type: Report from Study
  Country: US (occurrence: US)
  Receive Date: 20140527
  Receipt Date: 20140618
  Transmission Date: 20141212
  Serious: Yes (Hospitalization, Disabling)
  Sender: FDA-Public Use
  Company Number: PHEH2014US010324

PATIENT
  Sex: Female

DRUGS (9)
  1. DIOVAN [Suspect]
     Dosage: 80 MG, PER DAY
  2. DIOVAN [Suspect]
     Dosage: 80 MG, TID
  3. VALSARTAN [Suspect]
     Dosage: 80 MG, UNK
  4. ATENOLOL [Concomitant]
     Dosage: UNK UKN, UNK
  5. HYDROCHLOROTHIAZIDE [Concomitant]
     Dosage: UNK UKN, UNK
  6. PRATIPRAZOL [Concomitant]
     Indication: GASTROOESOPHAGEAL REFLUX DISEASE
     Dosage: UNK UKN, UNK
  7. METFORMIN [Concomitant]
     Indication: DIABETES MELLITUS
     Dosage: UNK UKN, UNK
  8. ZOLOFT [Concomitant]
     Indication: ANXIETY
     Dosage: UNK UKN, UNK
  9. AMBIEN [Concomitant]
     Dosage: UNK UKN, UNK

REACTIONS (9)
  - Hypertension [Unknown]
  - Malaise [Unknown]
  - Dizziness [Unknown]
  - Diabetes mellitus [Unknown]
  - Spinal column stenosis [Unknown]
  - Fibromyalgia [Unknown]
  - Heart rate irregular [Unknown]
  - Anxiety [Not Recovered/Not Resolved]
  - Drug ineffective [Unknown]
